FAERS Safety Report 23714716 (Version 1)
Quarter: 2024Q2

REPORT INFORMATION
  Report Type: Spontaneous
  Country: HR (occurrence: HR)
  Receive Date: 20240406
  Receipt Date: 20240406
  Transmission Date: 20240716
  Serious: Yes (Other)
  Sender: FDA-Public Use
  Company Number: HR-ABBVIE-5707207

PATIENT
  Age: 54 Year
  Sex: Female

DRUGS (1)
  1. RINVOQ [Suspect]
     Active Substance: UPADACITINIB
     Indication: Rheumatoid arthritis
     Route: 048
     Dates: start: 202107, end: 202310

REACTIONS (9)
  - Respiratory failure [Unknown]
  - Respiratory tract infection [Unknown]
  - Cough [Unknown]
  - Pyrexia [Unknown]
  - Ophthalmic herpes zoster [Unknown]
  - Pyrexia [Unknown]
  - Pneumonia bacterial [Unknown]
  - Synovitis [Unknown]
  - Arthralgia [Unknown]

NARRATIVE: CASE EVENT DATE: 20211101
